FAERS Safety Report 5242533-4 (Version None)
Quarter: 2007Q1

REPORT INFORMATION
  Report Type: 
  Country: None (occurrence: None)
  Receive Date: 20070221
  Receipt Date: 20070206
  Transmission Date: 20070707
  Serious: Yes (Other)
  Sender: FDA-Public Use
  Company Number: GB-JNJFOC-20070204173

PATIENT
  Age: 46 Year
  Sex: Female

DRUGS (4)
  1. TRAMADOL HYDROCHLORIDE [Suspect]
     Indication: ABDOMINAL PAIN
     Route: 048
  2. BUSCOPAN [Concomitant]
     Indication: ABDOMINAL SYMPTOM
     Route: 048
  3. EVOREL [Concomitant]
     Indication: HORMONE REPLACEMENT THERAPY
     Route: 062
  4. QVAR 40 [Concomitant]
     Indication: ASTHMA
     Route: 065

REACTIONS (4)
  - DEPRESSION [None]
  - DISTURBANCE IN ATTENTION [None]
  - DRUG WITHDRAWAL SYNDROME [None]
  - IMPAIRED WORK ABILITY [None]
